FAERS Safety Report 19317051 (Version 1)
Quarter: 2021Q2

REPORT INFORMATION
  Report Type: Spontaneous
  Country: FR (occurrence: FR)
  Receive Date: 20210528
  Receipt Date: 20210528
  Transmission Date: 20210717
  Serious: Yes (Hospitalization)
  Sender: FDA-Public Use
  Company Number: FR-ROCHE-2838029

PATIENT
  Age: 73 Year
  Sex: Male
  Weight: 63 kg

DRUGS (16)
  1. PARACETAMOL [Concomitant]
     Active Substance: ACETAMINOPHEN
  2. CORTANCYL [Concomitant]
     Active Substance: PREDNISONE
  3. ISOPHANE INSULIN [Concomitant]
     Active Substance: INSULIN NOS
  4. METHYLPREDNISOLONE. [Concomitant]
     Active Substance: METHYLPREDNISOLONE
     Dates: start: 20210415
  5. VITAMIN C [Concomitant]
     Active Substance: ASCORBIC ACID
  6. HUMALOG [Concomitant]
     Active Substance: INSULIN LISPRO
  7. TRAMADOL. [Concomitant]
     Active Substance: TRAMADOL
  8. IVERMECTIN. [Concomitant]
     Active Substance: IVERMECTIN
  9. FUROSEMIDE. [Concomitant]
     Active Substance: FUROSEMIDE
  10. RITUXIMAB. [Suspect]
     Active Substance: RITUXIMAB
     Indication: EPSTEIN-BARR VIRUS INFECTION REACTIVATION
     Route: 041
     Dates: start: 20210322
  11. METHYLPREDNISOLONE. [Concomitant]
     Active Substance: METHYLPREDNISOLONE
     Dates: start: 20210317
  12. METHYLPREDNISOLONE. [Concomitant]
     Active Substance: METHYLPREDNISOLONE
  13. BACTRIM [Concomitant]
     Active Substance: SULFAMETHOXAZOLE\TRIMETHOPRIM
  14. FOLINIC ACID [Concomitant]
     Active Substance: LEUCOVORIN
  15. MACROGOL [Concomitant]
     Active Substance: POLYETHYLENE GLYCOLS
  16. ZOPICLONE [Concomitant]
     Active Substance: ZOPICLONE
     Indication: INSOMNIA

REACTIONS (2)
  - COVID-19 [Recovered/Resolved]
  - Off label use [Unknown]

NARRATIVE: CASE EVENT DATE: 20210414
